FAERS Safety Report 15241327 (Version 1)
Quarter: 2018Q3

REPORT INFORMATION
  Report Type: Spontaneous
  Country: US (occurrence: US)
  Receive Date: 20180805
  Receipt Date: 20180805
  Transmission Date: 20181010
  Serious: No
  Sender: FDA-Public Use
  Company Number: US-SHIRE-US201829832

PATIENT
  Sex: Male

DRUGS (1)
  1. GATTEX [Suspect]
     Active Substance: TEDUGLUTIDE\WATER
     Indication: PRODUCT USED FOR UNKNOWN INDICATION
     Dosage: 0.3
     Route: 065
     Dates: start: 20180523

REACTIONS (3)
  - Fatigue [Recovered/Resolved]
  - Urine output decreased [Recovering/Resolving]
  - Asthenia [Recovered/Resolved]
